FAERS Safety Report 20759202 (Version 1)
Quarter: 2022Q2

REPORT INFORMATION
  Report Type: Spontaneous
  Country: US (occurrence: US)
  Receive Date: 20220427
  Receipt Date: 20220427
  Transmission Date: 20220720
  Serious: No
  Sender: FDA-Public Use
  Company Number: US-BioHaven Pharmaceuticals-2021BHV002947

PATIENT
  Age: 64 Year
  Sex: Female
  Weight: 61.290 kg

DRUGS (2)
  1. NURTEC ODT [Suspect]
     Active Substance: RIMEGEPANT SULFATE
     Indication: Migraine prophylaxis
     Dosage: OCTOBER 5TH IS WHEN PATIENT STARTED TAKING IT EVERY OTHER DAY.
     Route: 048
  2. NURTEC ODT [Suspect]
     Active Substance: RIMEGEPANT SULFATE
     Dosage: PATIENT HAD TAKEN BEFORE BUT NOT ON A REGULAR BASIS
     Route: 065

REACTIONS (7)
  - Gastric ulcer [Not Recovered/Not Resolved]
  - Oropharyngeal pain [Recovered/Resolved]
  - Dizziness [Unknown]
  - Malaise [Unknown]
  - Therapeutic product effect decreased [Unknown]
  - Abdominal discomfort [Not Recovered/Not Resolved]
  - Abdominal pain upper [Not Recovered/Not Resolved]

NARRATIVE: CASE EVENT DATE: 20211101
